FAERS Safety Report 17193156 (Version 1)
Quarter: 2019Q4

REPORT INFORMATION
  Report Type: Report from Study
  Country: US (occurrence: US)
  Receive Date: 20191223
  Receipt Date: 20191223
  Transmission Date: 20200122
  Serious: Yes (Hospitalization)
  Sender: FDA-Public Use
  Company Number: US-ACTELION-A-NJ2019-187917

PATIENT
  Age: 81 Year
  Sex: Female

DRUGS (20)
  1. CARTIA XT [Concomitant]
     Active Substance: DILTIAZEM HYDROCHLORIDE
  2. AMOXICILLIN. [Concomitant]
     Active Substance: AMOXICILLIN
  3. LEVOXYL [Concomitant]
     Active Substance: LEVOTHYROXINE SODIUM
  4. SPIRIVA [Concomitant]
     Active Substance: TIOTROPIUM BROMIDE MONOHYDRATE
  5. SYMBICORT [Concomitant]
     Active Substance: BUDESONIDE\FORMOTEROL FUMARATE DIHYDRATE
  6. ADEMPAS [Concomitant]
     Active Substance: RIOCIGUAT
  7. PREVACID [Concomitant]
     Active Substance: LANSOPRAZOLE
  8. OMEPRAZOLE. [Concomitant]
     Active Substance: OMEPRAZOLE
  9. XARELTO [Concomitant]
     Active Substance: RIVAROXABAN
  10. IPRATROPIUM BROMIDE. [Concomitant]
     Active Substance: IPRATROPIUM BROMIDE
  11. OPSUMIT [Suspect]
     Active Substance: MACITENTAN
     Indication: PULMONARY ARTERIAL HYPERTENSION
     Dosage: 10 MG, QD
     Route: 048
     Dates: start: 20140312
  12. ALDACTONE [Concomitant]
     Active Substance: SPIRONOLACTONE
  13. CALCIUM 500+D [Concomitant]
     Active Substance: CALCIUM\VITAMIN D
  14. FAMOTIDINE. [Concomitant]
     Active Substance: FAMOTIDINE
  15. CURCUMIN [Concomitant]
     Active Substance: CURCUMIN
  16. OMEGA 3 6 9 COMPLEX [Concomitant]
  17. OXYGEN. [Concomitant]
     Active Substance: OXYGEN
     Dosage: 1-2 L/MIN
  18. FUROSEMIDE. [Concomitant]
     Active Substance: FUROSEMIDE
  19. DOXAZOSIN MESYLATE. [Concomitant]
     Active Substance: DOXAZOSIN MESYLATE
  20. PREDNISONE. [Concomitant]
     Active Substance: PREDNISONE

REACTIONS (7)
  - Abdominal pain upper [Unknown]
  - Heart rate decreased [Recovered/Resolved]
  - Haemoglobin decreased [Unknown]
  - Blood pressure diastolic decreased [Recovered/Resolved]
  - Heart rate increased [Unknown]
  - Dyspnoea [Recovered/Resolved]
  - Nasopharyngitis [Not Recovered/Not Resolved]

NARRATIVE: CASE EVENT DATE: 20190225
